FAERS Safety Report 7387689-2 (Version None)
Quarter: 2011Q1

REPORT INFORMATION
  Report Type: 
  Country: None (occurrence: None)
  Receive Date: 20110331
  Receipt Date: 20110211
  Transmission Date: 20110831
  Serious: Yes (Death, Other)
  Sender: FDA-Public Use
  Company Number: US-BAYER-200931301NA

PATIENT
  Sex: Male

DRUGS (4)
  1. TECHNETIUM TC-99M [Concomitant]
     Indication: CARDIAC STRESS TEST
     Dosage: 13.0 MCI FOR REST, UNK
     Dates: start: 20040102
  2. TECHNETIUM TC-99M [Concomitant]
     Dosage: 42.5 MCI FOR STRESS, UNK
     Dates: start: 20040102
  3. TRASYLOL [Suspect]
     Indication: PRODUCT USED FOR UNKNOWN INDICATION
     Route: 042
     Dates: start: 20060710
  4. THALLIUM (201 TL) [Concomitant]
     Indication: SCAN MYOCARDIAL PERFUSION
     Dosage: 2.2 MCI, UNK
     Dates: start: 19841018

REACTIONS (12)
  - RENAL FAILURE [None]
  - UNEVALUABLE EVENT [None]
  - MULTI-ORGAN FAILURE [None]
  - PAIN [None]
  - INJURY [None]
  - RENAL INJURY [None]
  - RENAL IMPAIRMENT [None]
  - DEATH [None]
  - EMOTIONAL DISTRESS [None]
  - STRESS [None]
  - ANXIETY [None]
  - FEAR [None]
